FAERS Safety Report 8406322-1 (Version None)
Quarter: 2012Q2

REPORT INFORMATION
  Report Type: 
  Country: None (occurrence: None)
  Receive Date: 20120323
  Receipt Date: 20110518
  Transmission Date: 20120825
  Serious: Yes (Hospitalization)
  Sender: FDA-Public Use
  Company Number: 163-21880-11052350

PATIENT
  Age: 73 Year
  Sex: Male

DRUGS (9)
  1. HYDROMORPHONE HYDROCHLORIDE [Concomitant]
  2. DEXAMETHASONE [Concomitant]
  3. MULTAQ(DRONEDARONE HYDROCHLORIDE)(UNKNOWN) [Concomitant]
  4. GEMFIBROZIL [Concomitant]
  5. ACYCLOVIR (ACICLOVIR)(UNKNOWN) [Concomitant]
  6. AMLODIPINE BESYLATE(AMLODIPINE BESILATE)(UNKNOWN) [Concomitant]
  7. NEURONTIN [Concomitant]
  8. SEROQUEL [Concomitant]
  9. REVLIMID [Suspect]
     Indication: MULTIPLE MYELOMA
     Dosage: DAILY X 21, PO
     Route: 048
     Dates: start: 20110401

REACTIONS (1)
  - ATRIAL FIBRILLATION [None]
